FAERS Safety Report 5681626-4 (Version None)
Quarter: 2008Q1

REPORT INFORMATION
  Report Type: 
  Country: None (occurrence: None)
  Receive Date: 20080326
  Receipt Date: 20070226
  Transmission Date: 20080703
  Serious: No
  Sender: FDA-Public Use
  Company Number: US-BAYER-US-2007-006820

PATIENT
  Age: 31 Year
  Sex: Female
  Weight: 73 kg

DRUGS (1)
  1. MIRENA [Suspect]
     Indication: CONTRACEPTION
     Route: 015
     Dates: start: 20050701

REACTIONS (6)
  - DEPRESSION [None]
  - DYSPAREUNIA [None]
  - HEADACHE [None]
  - METRORRHAGIA [None]
  - MOOD SWINGS [None]
  - WEIGHT INCREASED [None]
